FAERS Safety Report 4988995-9 (Version None)
Quarter: 2006Q2

REPORT INFORMATION
  Report Type: 
  Country: None (occurrence: None)
  Receive Date: 20060425
  Receipt Date: 20060413
  Transmission Date: 20061013
  Serious: Yes (Hospitalization)
  Sender: FDA-Public Use
  Company Number: 2006038164

PATIENT
  Age: 70 Year
  Sex: Female
  Weight: 63.6397 kg

DRUGS (10)
  1. SUTENT [Suspect]
     Indication: RENAL CELL CARCINOMA STAGE UNSPECIFIED
     Dosage: 50 MG (50 MG, 1 IN 1 D), ORAL
     Route: 048
     Dates: start: 20060207, end: 20060320
  2. HYDROCHLOROTHIAZIDE [Concomitant]
  3. PREMARIN [Concomitant]
  4. HYDROCODONE BITARTRATE [Concomitant]
  5. PAROXETINE HCL [Concomitant]
  6. AREDIA [Concomitant]
  7. ARANESP [Concomitant]
  8. NORVASC [Concomitant]
  9. TYLENOL PM  (DIPHENHYDRAMINE, PARACETAMOL) [Concomitant]
  10. TYLENOT (PARACETAMOL) [Concomitant]

REACTIONS (1)
  - CEREBELLAR INFARCTION [None]
